FAERS Safety Report 7725470-2 (Version None)
Quarter: 2011Q3

REPORT INFORMATION
  Report Type: 
  Country: None (occurrence: None)
  Receive Date: 20110902
  Receipt Date: 20110802
  Transmission Date: 20111222
  Serious: No
  Sender: FDA-Public Use
  Company Number: US-BRISTOL-MYERS SQUIBB COMPANY-15941925

PATIENT
  Age: 5 Decade
  Sex: Male

DRUGS (2)
  1. KOMBIGLYZE XR [Suspect]
     Dosage: 1DF=5/1000 MG
  2. METFORMIN HCL [Suspect]

REACTIONS (1)
  - DRUG INTOLERANCE [None]
